FAERS Safety Report 19576314 (Version 1)
Quarter: 2021Q3

REPORT INFORMATION
  Report Type: Spontaneous
  Country: US (occurrence: US)
  Receive Date: 20210717
  Receipt Date: 20210717
  Transmission Date: 20211014
  Serious: Yes (Hospitalization)
  Sender: FDA-Public Use
  Company Number: None

PATIENT
  Age: 66 Year
  Sex: Male
  Weight: 97 kg

DRUGS (1)
  1. CISPLATIN. [Suspect]
     Active Substance: CISPLATIN
     Dates: end: 20210709

REACTIONS (4)
  - Dehydration [None]
  - General physical health deterioration [None]
  - Mucosal inflammation [None]
  - Oral pain [None]

NARRATIVE: CASE EVENT DATE: 20210713
